FAERS Safety Report 20603116 (Version 1)
Quarter: 2022Q1

REPORT INFORMATION
  Report Type: Report from Study
  Country: CR (occurrence: CR)
  Receive Date: 20220316
  Receipt Date: 20220316
  Transmission Date: 20220423
  Serious: Yes (Hospitalization)
  Sender: FDA-Public Use
  Company Number: CR-JNJFOC-20220326478

PATIENT
  Sex: Female
  Weight: 49 kg

DRUGS (1)
  1. SPRAVATO [Suspect]
     Active Substance: ESKETAMINE
     Indication: Depression suicidal
     Dosage: EVERY 8 DAYS.

REACTIONS (3)
  - Oropharyngeal discomfort [Unknown]
  - Feeling cold [Unknown]
  - Dissociation [Unknown]

NARRATIVE: CASE EVENT DATE: 20220101
